FAERS Safety Report 12914204 (Version 2)
Quarter: 2016Q4

REPORT INFORMATION
  Report Type: Report from Study
  Country: US (occurrence: US)
  Receive Date: 20161106
  Receipt Date: 20161208
  Transmission Date: 20170207
  Serious: Yes (Other)
  Sender: FDA-Public Use
  Company Number: US-AMGEN-USASL2016150772

PATIENT
  Age: 62 Year
  Sex: Female

DRUGS (7)
  1. LINZESS [Concomitant]
     Active Substance: LINACLOTIDE
     Indication: IRRITABLE BOWEL SYNDROME
     Dosage: UNK
  2. VITAMIN D [Concomitant]
     Active Substance: CHOLECALCIFEROL
     Dosage: UNK
  3. MOVANTIK [Concomitant]
     Active Substance: NALOXEGOL OXALATE
     Indication: CONSTIPATION
     Dosage: UNK
  4. CRESTOR [Concomitant]
     Active Substance: ROSUVASTATIN CALCIUM
     Dosage: 40 MG, UNK
  5. CALCIUM [Suspect]
     Active Substance: CALCIUM
     Indication: PRODUCT USED FOR UNKNOWN INDICATION
     Dosage: UNK
     Route: 065
  6. PROLIA [Suspect]
     Active Substance: DENOSUMAB
     Indication: OSTEOPOROSIS POSTMENOPAUSAL
     Dosage: UNK
     Route: 065
     Dates: start: 2015
  7. HYDROCHLOROTHIAZIDE. [Concomitant]
     Active Substance: HYDROCHLOROTHIAZIDE
     Indication: BLOOD PRESSURE MEASUREMENT
     Dosage: UNK

REACTIONS (18)
  - Musculoskeletal pain [Not Recovered/Not Resolved]
  - Intervertebral disc protrusion [Unknown]
  - Scoliosis [Unknown]
  - Deep vein thrombosis [Unknown]
  - Back pain [Not Recovered/Not Resolved]
  - Arthritis [Unknown]
  - Arthropathy [Unknown]
  - Coagulopathy [Unknown]
  - Panic attack [Recovered/Resolved]
  - Fibromyalgia [Unknown]
  - Pain [Not Recovered/Not Resolved]
  - Blood pressure abnormal [Unknown]
  - Constipation [Unknown]
  - Neck pain [Not Recovered/Not Resolved]
  - Sleep disorder due to general medical condition, insomnia type [Unknown]
  - Arthralgia [Not Recovered/Not Resolved]
  - Irritable bowel syndrome [Unknown]
  - Myalgia [Unknown]

NARRATIVE: CASE EVENT DATE: 2015
